FAERS Safety Report 17096697 (Version 1)
Quarter: 2019Q4

REPORT INFORMATION
  Report Type: Spontaneous
  Country: CH (occurrence: CH)
  Receive Date: 20191202
  Receipt Date: 20191202
  Transmission Date: 20200122
  Serious: Yes (Hospitalization, Other)
  Sender: FDA-Public Use
  Company Number: CH-BION-008401

PATIENT
  Age: 40 Year
  Sex: Male

DRUGS (3)
  1. PARACETAMOL [Concomitant]
     Active Substance: ACETAMINOPHEN
     Indication: TENSION HEADACHE
  2. IBUPROFEN. [Suspect]
     Active Substance: IBUPROFEN
     Indication: TENSION HEADACHE
  3. TRAMADOL. [Concomitant]
     Active Substance: TRAMADOL
     Indication: TENSION HEADACHE

REACTIONS (1)
  - Meningitis aseptic [Recovered/Resolved]
